FAERS Safety Report 13944883 (Version 1)
Quarter: 2017Q3

REPORT INFORMATION
  Report Type: Spontaneous
  Country: US (occurrence: US)
  Receive Date: 20170907
  Receipt Date: 20170907
  Transmission Date: 20171128
  Serious: No
  Sender: FDA-Public Use
  Company Number: US-ROCHE-1327763

PATIENT
  Sex: Male

DRUGS (3)
  1. RITUXAN [Suspect]
     Active Substance: RITUXIMAB
     Indication: LEUKAEMIA
     Dosage: 60CC/HOUR
     Route: 065
  2. RITUXAN [Suspect]
     Active Substance: RITUXIMAB
     Dosage: DOSE DOUBLE
     Route: 065
     Dates: start: 20131121
  3. RITUXAN [Suspect]
     Active Substance: RITUXIMAB
     Dosage: DOSE DOUBLE
     Route: 065
     Dates: start: 20131129

REACTIONS (1)
  - Pyrexia [Unknown]
